FAERS Safety Report 13791033 (Version 1)
Quarter: 2017Q3

REPORT INFORMATION
  Report Type: Spontaneous
  Country: US (occurrence: US)
  Receive Date: 20170725
  Receipt Date: 20170725
  Transmission Date: 20171127
  Serious: Yes (Hospitalization, Other)
  Sender: FDA-Public Use
  Company Number: US-PFIZER INC-2014012354

PATIENT
  Age: 52 Year
  Sex: Male

DRUGS (9)
  1. ENBREL [Suspect]
     Active Substance: ETANERCEPT
     Indication: PSORIATIC ARTHROPATHY
     Dosage: UNK
  2. INSULIN [Concomitant]
     Active Substance: INSULIN NOS
     Indication: DIABETES MELLITUS
     Dosage: UNK
  3. ENBREL [Suspect]
     Active Substance: ETANERCEPT
     Indication: PSORIATIC ARTHROPATHY
     Dosage: 25 MG, QWK
     Dates: start: 20001101
  4. SULFASALAZINE. [Suspect]
     Active Substance: SULFASALAZINE
     Dosage: UNK
  5. ENBREL [Suspect]
     Active Substance: ETANERCEPT
     Indication: PSORIATIC ARTHROPATHY
     Dosage: UNK
  6. ARAVA [Suspect]
     Active Substance: LEFLUNOMIDE
     Dosage: 20 MG, QD
     Route: 065
     Dates: start: 2009
  7. METHOTREXATE SODIUM. [Suspect]
     Active Substance: METHOTREXATE SODIUM
     Dosage: UNK UNK, QWK
     Route: 048
     Dates: start: 1990, end: 2009
  8. QUINACRINE [Suspect]
     Active Substance: QUINACRINE
     Dosage: UNK
  9. LEFLUNOMIDE. [Suspect]
     Active Substance: LEFLUNOMIDE
     Dosage: UNK

REACTIONS (22)
  - Renal injury [Unknown]
  - Condition aggravated [Not Recovered/Not Resolved]
  - Ureteric cancer [Recovered/Resolved]
  - Diarrhoea [Not Recovered/Not Resolved]
  - Arthralgia [Not Recovered/Not Resolved]
  - Condition aggravated [Unknown]
  - Nephrolithiasis [Unknown]
  - Hepatic steatosis [Recovered/Resolved]
  - Urine potassium increased [Recovered/Resolved]
  - Joint range of motion decreased [Not Recovered/Not Resolved]
  - Drug ineffective [Unknown]
  - Pain in extremity [Not Recovered/Not Resolved]
  - Inflammation [Not Recovered/Not Resolved]
  - Psoriatic arthropathy [Not Recovered/Not Resolved]
  - Nausea [Recovered/Resolved]
  - Finger deformity [Not Recovered/Not Resolved]
  - Pruritus [Not Recovered/Not Resolved]
  - Bone erosion [Not Recovered/Not Resolved]
  - Creatine urine increased [Recovered/Resolved]
  - Injection site warmth [Recovered/Resolved]
  - Injection site pain [Unknown]
  - Erythema [Not Recovered/Not Resolved]

NARRATIVE: CASE EVENT DATE: 2000
